FAERS Safety Report 7394842 (Version 4)
Quarter: 2013Q4

REPORT INFORMATION
  Report Type: Spontaneous
  Country: US (occurrence: US)
  Receive Date: 20100520
  Receipt Date: 20131213
  Transmission Date: 20140711
  Serious: Yes (Other)
  Sender: FDA-Public Use
  Company Number: US-BAYER-201022793NA

PATIENT
  Age: 32 Year
  Sex: Female
  Weight: 42.18 kg

DRUGS (6)
  1. YAZ [Suspect]
     Indication: CONTRACEPTION
     Dosage: 1 DF, QD
     Route: 048
     Dates: start: 200708, end: 20090915
  2. YAZ [Suspect]
     Indication: ACNE
  3. YAZ [Suspect]
     Indication: PREMENSTRUAL SYNDROME
  4. MOTRIN [Concomitant]
     Dosage: 2 DF, QD
     Dates: start: 2006, end: 2008
  5. MULTIVITAMINS [Concomitant]
  6. NEXIUM [Concomitant]
     Dosage: 40 MG, UNK
     Route: 048

REACTIONS (5)
  - Cholelithiasis [Unknown]
  - Cholecystitis chronic [None]
  - Abdominal pain upper [Unknown]
  - Headache [None]
  - Feeling abnormal [None]
